FAERS Safety Report 22801171 (Version 3)
Quarter: 2023Q4

REPORT INFORMATION
  Report Type: Report from Study
  Country: CL (occurrence: CL)
  Receive Date: 20230809
  Receipt Date: 20231018
  Transmission Date: 20240109
  Serious: Yes (Other)
  Sender: FDA-Public Use
  Company Number: CL-JNJFOC-20230811900

PATIENT
  Age: 67 Year
  Sex: Female

DRUGS (1)
  1. SIMPONI [Suspect]
     Active Substance: GOLIMUMAB
     Indication: Rheumatoid arthritis
     Dosage: LAST DRUG APPLICATION: 29-AUG-2023
     Route: 058
     Dates: start: 20230329, end: 20230629

REACTIONS (12)
  - Anal haemorrhage [Unknown]
  - Syncope [Unknown]
  - Rheumatoid arthritis [Unknown]
  - Visual impairment [Unknown]
  - Hypersensitivity [Unknown]
  - Headache [Unknown]
  - Blood pressure decreased [Unknown]
  - Swelling [Unknown]
  - Insomnia [Unknown]
  - Fear of injection [Unknown]
  - Toxicity to various agents [Unknown]
  - Eye swelling [Unknown]
